FAERS Safety Report 9826198 (Version 1)
Quarter: 2014Q1

REPORT INFORMATION
  Report Type: Spontaneous
  Country: US (occurrence: None)
  Receive Date: 20140115
  Receipt Date: 20140115
  Transmission Date: 20141002
  Serious: Yes (Hospitalization, Other)
  Sender: FDA-Public Use
  Company Number: JPI-P-012731

PATIENT
  Age: 25 Year
  Sex: Female

DRUGS (6)
  1. XYREM (SODIUM OXYBATE) ORAL SOLUTION, 500MG/ML [Suspect]
     Indication: NARCOLEPSY
     Route: 048
     Dates: start: 20101006, end: 201010
  2. BUSPIRONE [Concomitant]
  3. CALCIUM CARBONATE [Concomitant]
  4. VITAMIN D (ERGOCALCIFEROL) [Concomitant]
  5. LEVOTHYROXINE (LEVOTHYROXINE SODIUM) [Concomitant]
  6. OXYCODONE [Concomitant]

REACTIONS (13)
  - Substance-induced psychotic disorder [None]
  - Paranoia [None]
  - Agitation [None]
  - Overdose [None]
  - Psychotic disorder [None]
  - Drug withdrawal syndrome [None]
  - Mania [None]
  - Aggression [None]
  - Headache [None]
  - Nausea [None]
  - Gait disturbance [None]
  - Abnormal behaviour [None]
  - Confusional state [None]
